FAERS Safety Report 4675626-0 (Version None)
Quarter: 2005Q2

REPORT INFORMATION
  Report Type: 
  Country: None (occurrence: None)
  Receive Date: 20050525
  Receipt Date: 20050512
  Transmission Date: 20051028
  Serious: Yes (Other)
  Sender: FDA-Public Use
  Company Number: ST-2005-008352

PATIENT
  Age: 76 Year
  Sex: Female

DRUGS (5)
  1. OLMETEC [Suspect]
     Indication: HYPERTENSION
     Dosage: 20 MG QD PO
     Route: 048
     Dates: start: 20050329, end: 20050410
  2. BAYASPIRIN [Concomitant]
  3. AMAZOLON [Concomitant]
  4. BUP-4 [Concomitant]
  5. SENNOSIDE [Concomitant]

REACTIONS (2)
  - CHOLECYSTITIS ACUTE [None]
  - HEPATIC FUNCTION ABNORMAL [None]
